FAERS Safety Report 7553354-1 (Version None)
Quarter: 2011Q2

REPORT INFORMATION
  Report Type: 
  Country: None (occurrence: None)
  Receive Date: 20110617
  Receipt Date: 20110609
  Transmission Date: 20111010
  Serious: Yes (Hospitalization)
  Sender: FDA-Public Use
  Company Number: DE-AMGEN-DEUCT2011030666

PATIENT
  Age: 13 Year
  Sex: Female
  Weight: 63.1 kg

DRUGS (2)
  1. ETANERCEPT [Suspect]
     Indication: JUVENILE ARTHRITIS
     Dosage: 50 MG, QWK
     Dates: start: 20100601
  2. METHOTREXATE SODIUM [Suspect]
     Indication: JUVENILE ARTHRITIS
     Dosage: 20 MG, WEEKLY
     Dates: start: 20080801

REACTIONS (1)
  - FACIAL PARESIS [None]
